FAERS Safety Report 7730814-1 (Version None)
Quarter: 2011Q3

REPORT INFORMATION
  Report Type: 
  Country: None (occurrence: None)
  Receive Date: 20110831
  Receipt Date: 20110726
  Transmission Date: 20111222
  Serious: Yes (Other)
  Sender: FDA-Public Use
  Company Number: 2011170906

PATIENT
  Age: 52 Year
  Sex: Female

DRUGS (4)
  1. GEMTUZUMAB OZOGAMICIN (GEMTUZUMAB OZOGAMICIN) [Suspect]
     Indication: ACUTE LEUKAEMIA
     Dosage: 10 MG, 1/DAY, INTRAVENOUS
     Route: 042
     Dates: start: 20080904, end: 20080904
  2. CERUBIDINE [Suspect]
     Indication: ACUTE LEUKAEMIA
     Dosage: 100 MG, 1XDAY, INTRAVENOUS
     Route: 042
     Dates: start: 20080911, end: 20081001
  3. OLICLINOMEL (TOTAL PARENTERAL NUTRITION) [Suspect]
     Dosage: 1.5 L, 1XDAY, INTRAVENOUS
     Route: 042
     Dates: start: 20080911, end: 20081001
  4. CYTARABINE [Suspect]
     Indication: ACUTE MYELOID LEUKAEMIA
     Dosage: 334 MG, 1XDAY, INTRAVENOUS
     Route: 042
     Dates: start: 20080904, end: 20080911

REACTIONS (1)
  - CYTOLYTIC HEPATITIS [None]
